FAERS Safety Report 22209556 (Version 1)
Quarter: 2023Q2

REPORT INFORMATION
  Report Type: Spontaneous
  Country: JP (occurrence: JP)
  Receive Date: 20230414
  Receipt Date: 20230414
  Transmission Date: 20230722
  Serious: Yes (Death)
  Sender: FDA-Public Use
  Company Number: JP-SLATE RUN PHARMACEUTICALS-23JP001545

PATIENT

DRUGS (3)
  1. VORICONAZOLE [Suspect]
     Active Substance: VORICONAZOLE
     Indication: Aspergillus infection
     Dosage: 6 MILLIGRAM PER KILOGRAM, Q 12 HR
     Route: 042
  2. PREDNISOLONE [Concomitant]
     Active Substance: PREDNISOLONE
     Indication: Chronic obstructive pulmonary disease
     Dosage: 5 MILLIGRAM, QD
  3. UNSPECIFIED INGREDIENT [Concomitant]
     Active Substance: UNSPECIFIED INGREDIENT
     Indication: Lung adenocarcinoma

REACTIONS (3)
  - Intra-abdominal haemorrhage [Fatal]
  - Aneurysm ruptured [Fatal]
  - Vasculitis necrotising [Fatal]
